FAERS Safety Report 25818098 (Version 1)
Quarter: 2025Q3

REPORT INFORMATION
  Report Type: Spontaneous
  Country: EU (occurrence: EU)
  Receive Date: 20250918
  Receipt Date: 20250918
  Transmission Date: 20251021
  Serious: Yes (Hospitalization)
  Sender: INCYTE
  Company Number: EU-002147023-NVSC2025FR143274

PATIENT
  Age: 69 Year

DRUGS (1)
  1. RUXOLITINIB [Suspect]
     Active Substance: RUXOLITINIB
     Indication: Graft versus host disease
     Dosage: 5 MG, BID (2 X PER DAY)
     Route: 065

REACTIONS (1)
  - Cervical cord compression [Unknown]
